FAERS Safety Report 6159965-2 (Version None)
Quarter: 2009Q2

REPORT INFORMATION
  Report Type: 
  Country: None (occurrence: None)
  Receive Date: 20090415
  Receipt Date: 20090331
  Transmission Date: 20091009
  Serious: Yes (Other)
  Sender: FDA-Public Use
  Company Number: 2009S1005774

PATIENT
  Age: 62 Year
  Sex: Female

DRUGS (1)
  1. TAMOXIFEN CITRATE [Suspect]
     Indication: BREAST CANCER
     Dosage: 40 MG; DAILY ORAL, 20 MG; DAILY; ORAL
     Route: 048

REACTIONS (4)
  - BLINDNESS UNILATERAL [None]
  - OPTIC NEURITIS [None]
  - TOXIC OPTIC NEUROPATHY [None]
  - VISUAL ACUITY REDUCED [None]
